FAERS Safety Report 6308055-4 (Version None)
Quarter: 2009Q3

REPORT INFORMATION
  Report Type: 
  Country: None (occurrence: None)
  Receive Date: 20090813
  Receipt Date: 20090806
  Transmission Date: 20100115
  Serious: Yes (Hospitalization)
  Sender: FDA-Public Use
  Company Number: B0578193A

PATIENT
  Age: 74 Year
  Sex: Male

DRUGS (3)
  1. FLUTIDE DISKUS [Suspect]
     Indication: ASTHMA
     Route: 055
     Dates: start: 20060101
  2. ALDECIN [Concomitant]
     Indication: ASTHMA
     Route: 055
     Dates: start: 19910101, end: 20030101
  3. QVAR 40 [Concomitant]
     Indication: ASTHMA
     Route: 055
     Dates: start: 20030101, end: 20060101

REACTIONS (8)
  - ADRENAL INSUFFICIENCY [None]
  - BLOOD CORTISOL DECREASED [None]
  - CUSHING'S SYNDROME [None]
  - DIABETES MELLITUS [None]
  - HYPERTENSION [None]
  - OBESITY [None]
  - OEDEMA PERIPHERAL [None]
  - WEIGHT INCREASED [None]
